FAERS Safety Report 12347121 (Version 1)
Quarter: 2016Q2

REPORT INFORMATION
  Report Type: Spontaneous
  Country: US (occurrence: US)
  Receive Date: 20160509
  Receipt Date: 20160509
  Transmission Date: 20160815
  Serious: No
  Sender: FDA-Public Use
  Company Number: US-BAYER-2016-086082

PATIENT
  Age: 93 Year
  Sex: Female
  Weight: 60.77 kg

DRUGS (8)
  1. GAMOFA [Concomitant]
     Active Substance: FAMOTIDINE
  2. FUROSEMID [FUROSEMIDE] [Concomitant]
  3. WARFARIN [Concomitant]
     Active Substance: WARFARIN
  4. BYSTOLIC [Concomitant]
     Active Substance: NEBIVOLOL HYDROCHLORIDE
  5. MIRALAX [Suspect]
     Active Substance: POLYETHYLENE GLYCOL 3350
     Indication: GALLBLADDER DISORDER
     Dosage: 1 DF, QD
     Route: 048
     Dates: start: 2012
  6. MIRALAX [Suspect]
     Active Substance: POLYETHYLENE GLYCOL 3350
     Indication: GENERAL PHYSICAL HEALTH DETERIORATION
  7. MIRALAX [Suspect]
     Active Substance: POLYETHYLENE GLYCOL 3350
     Indication: HYPOTONIA
  8. SYNTHROID [Concomitant]
     Active Substance: LEVOTHYROXINE SODIUM

REACTIONS (1)
  - Product use issue [None]
